FAERS Safety Report 6674831-1 (Version None)
Quarter: 2010Q2

REPORT INFORMATION
  Report Type: 
  Country: None (occurrence: None)
  Receive Date: 20100409
  Receipt Date: 20100405
  Transmission Date: 20101027
  Serious: Yes (Other)
  Sender: FDA-Public Use
  Company Number: US-GILEAD-2010-0028101

PATIENT
  Sex: Female

DRUGS (21)
  1. LETAIRIS [Suspect]
     Indication: PULMONARY ARTERIAL HYPERTENSION
     Route: 048
  2. LETAIRIS [Suspect]
     Route: 048
     Dates: start: 20090402
  3. WARFARIN SODIUM [Concomitant]
  4. FUROSEMIDE [Concomitant]
  5. DILTIAZEM HCL [Concomitant]
  6. IRON SUPPLEMENT [Concomitant]
  7. CALCIUM W/VITAMIN D [Concomitant]
  8. GABAPENTIN [Concomitant]
  9. CYCLOBENZAPRINE [Concomitant]
  10. METAMUCIL-2 [Concomitant]
  11. GENTEAL [Concomitant]
  12. SIMVASTATIN [Concomitant]
  13. NIACIN [Concomitant]
  14. NEXIUM [Concomitant]
  15. FLOVENT [Concomitant]
  16. SPIRIVA [Concomitant]
  17. ATROVENT [Concomitant]
  18. XOPENEX [Concomitant]
  19. FLONASE [Concomitant]
  20. HYDROCODONE BITARTRATE [Concomitant]
  21. VALIUM [Concomitant]

REACTIONS (2)
  - BRONCHITIS [None]
  - CARDIAC FAILURE CONGESTIVE [None]
